FAERS Safety Report 7765969-6 (Version None)
Quarter: 2011Q3

REPORT INFORMATION
  Report Type: 
  Country: None (occurrence: None)
  Receive Date: 20110921
  Receipt Date: 20101215
  Transmission Date: 20111222
  Serious: Yes (Death)
  Sender: FDA-Public Use
  Company Number: PHHY2010FR81551

PATIENT
  Sex: Female
  Weight: 80 kg

DRUGS (7)
  1. VITAMIN D [Concomitant]
     Dosage: UNK UKN, UNK
     Dates: start: 20100901
  2. CAPTOPRIL AND HYDROCHLOROTHIAZIDE [Concomitant]
     Indication: HYPERTENSION
     Dosage: UNK UKN, UNK
  3. SOTALOL HCL [Concomitant]
     Indication: HYPERTENSION
     Dosage: UNK UKN, UNK
  4. ASPIRIN [Concomitant]
     Dosage: 160 MG, QD
     Route: 048
  5. ZOLEDRONOC ACID [Suspect]
     Indication: OSTEOPOROTIC FRACTURE
     Dosage: 5 MG/100 ML
     Dates: start: 20101115
  6. LIPANOR [Concomitant]
     Indication: DYSLIPIDAEMIA
     Dosage: UNK UKN, UNK
  7. GLUCOPHAGE [Concomitant]
     Indication: METABOLIC SYNDROME
     Dosage: 1000 MG, QD
     Route: 048
     Dates: start: 20000101

REACTIONS (3)
  - BLOOD CALCIUM INCREASED [None]
  - DEATH [None]
  - HIGH DENSITY LIPOPROTEIN DECREASED [None]
